FAERS Safety Report 13706845 (Version 3)
Quarter: 2019Q3

REPORT INFORMATION
  Report Type: Spontaneous
  Country: US (occurrence: US)
  Receive Date: 20170630
  Receipt Date: 20190726
  Transmission Date: 20191004
  Serious: No
  Sender: FDA-Public Use
  Company Number: US-JNJFOC-20170616781

PATIENT
  Sex: Male

DRUGS (8)
  1. RISPERIDONE. [Suspect]
     Active Substance: RISPERIDONE
     Indication: MOOD SWINGS
     Dosage: EVERY BEDTIME
     Route: 048
     Dates: start: 20110510
  2. RISPERIDONE. [Suspect]
     Active Substance: RISPERIDONE
     Route: 048
     Dates: start: 2016
  3. RISPERDAL [Suspect]
     Active Substance: RISPERIDONE
     Indication: DEPRESSION
     Route: 048
     Dates: start: 20110516, end: 20120807
  4. RISPERIDONE. [Suspect]
     Active Substance: RISPERIDONE
     Indication: BIPOLAR DISORDER
     Dosage: EVERY BEDTIME
     Route: 048
     Dates: start: 20110430, end: 20110509
  5. RISPERIDONE. [Suspect]
     Active Substance: RISPERIDONE
     Route: 048
     Dates: start: 20121227
  6. RISPERIDONE. [Suspect]
     Active Substance: RISPERIDONE
     Indication: MENTAL DISORDER
     Dosage: EVERY BEDTIME
     Route: 048
     Dates: start: 20110511, end: 20110512
  7. RISPERDAL [Suspect]
     Active Substance: RISPERIDONE
     Indication: PSYCHOTIC DISORDER
     Dosage: VARING DOSE FROM 0.5 MG , 1 MG, 1.5 MG
     Route: 048
     Dates: start: 20110504, end: 20110511
  8. RISPERIDONE. [Suspect]
     Active Substance: RISPERIDONE
     Route: 048
     Dates: start: 20110516, end: 20120807

REACTIONS (3)
  - Gynaecomastia [Unknown]
  - Emotional distress [Unknown]
  - Therapy cessation [Unknown]
